FAERS Safety Report 8507538-6 (Version None)
Quarter: 2012Q3

REPORT INFORMATION
  Report Type: 
  Country: None (occurrence: None)
  Receive Date: 20120713
  Receipt Date: 20120509
  Transmission Date: 20120928
  Serious: Yes (Hospitalization)
  Sender: FDA-Public Use
  Company Number: JP-009507513-1207JPN001479

PATIENT

DRUGS (6)
  1. CELESTAMINE TAB [Concomitant]
     Indication: PROPHYLAXIS
     Route: 048
     Dates: end: 20120425
  2. LASIX [Concomitant]
     Indication: PROPHYLAXIS
     Route: 048
     Dates: end: 20120501
  3. PEG-INTRON [Suspect]
     Indication: HEPATITIS C
     Dosage: 1.5 MICROGRAM, QW
     Route: 058
     Dates: start: 20120313, end: 20120404
  4. ALDACTONE [Concomitant]
     Indication: PROPHYLAXIS
     Route: 048
     Dates: end: 20120501
  5. TELAPREVIR [Concomitant]
     Indication: HEPATITIS C
     Route: 048
     Dates: start: 20120313, end: 20120404
  6. REBETOL [Suspect]
     Indication: HEPATITIS C
     Route: 048
     Dates: start: 20120313, end: 20120404

REACTIONS (3)
  - INTERSTITIAL LUNG DISEASE [None]
  - HEPATIC FAILURE [None]
  - OEDEMA [None]
